FAERS Safety Report 4549359-5 (Version None)
Quarter: 2005Q1

REPORT INFORMATION
  Report Type: 
  Country: None (occurrence: None)
  Receive Date: 20050110
  Receipt Date: 20050110
  Transmission Date: 20050727
  Serious: Yes (Disabling)
  Sender: FDA-Public Use
  Company Number: None

PATIENT
  Age: 42 Year
  Sex: Female
  Weight: 59.8748 kg

DRUGS (11)
  1. NOVATROPINE INJ [Suspect]
     Indication: MULTIPLE SCLEROSIS
     Dosage: 19 MG BY IV INFUSION OVER 1-1/2 TO 2 HRS
     Route: 042
     Dates: start: 20040512
  2. NOVATROPINE INJ [Suspect]
     Indication: MULTIPLE SCLEROSIS
     Dosage: 19 MG BY IV INFUSION OVER 1-1/2 TO 2 HRS
     Route: 042
     Dates: start: 20040820
  3. NOVATROPINE INJ [Suspect]
     Indication: MULTIPLE SCLEROSIS
     Dosage: 19 MG BY IV INFUSION OVER 1-1/2 TO 2 HRS
     Route: 042
     Dates: start: 20041117
  4. SOLU-MEDROL [Concomitant]
  5. UNSPECIFIED ANTI-NAUSEA DRUG [Concomitant]
  6. AVONEX [Concomitant]
  7. LIPITOR [Concomitant]
  8. CYMBALTA [Concomitant]
  9. NEURONTIN [Concomitant]
  10. BACLOFEN [Concomitant]
  11. KLONOPIN [Concomitant]

REACTIONS (2)
  - NEURALGIA [None]
  - THERAPY NON-RESPONDER [None]
